FAERS Safety Report 21550847 (Version 1)
Quarter: 2022Q4

REPORT INFORMATION
  Report Type: Spontaneous
  Country: US (occurrence: US)
  Receive Date: 20221103
  Receipt Date: 20221103
  Transmission Date: 20230113
  Serious: No
  Sender: FDA-Public Use
  Company Number: US-INCYTE CORPORATION-2022IN010371

PATIENT

DRUGS (2)
  1. JAKAFI [Suspect]
     Active Substance: RUXOLITINIB
     Indication: Myelofibrosis
     Dosage: 20 MILLIGRAM, IN THE MORNING, 10 MILLIGRAM, IN THE EVENING
     Route: 048
     Dates: start: 202208
  2. JAKAFI [Suspect]
     Active Substance: RUXOLITINIB
     Dosage: 10 MILLIGRAM, BID
     Route: 065

REACTIONS (5)
  - Pain in extremity [Unknown]
  - Peripheral swelling [Unknown]
  - Product dose omission issue [Unknown]
  - Somnolence [Unknown]
  - Intentional product use issue [Unknown]
